FAERS Safety Report 5521779-1 (Version None)
Quarter: 2007Q4

REPORT INFORMATION
  Report Type: 
  Country: None (occurrence: None)
  Receive Date: 20071120
  Receipt Date: 20071114
  Transmission Date: 20080405
  Serious: Yes (Other)
  Sender: FDA-Public Use
  Company Number: US-AVENTIS-200717066US

PATIENT
  Sex: Male
  Weight: 86.18 kg

DRUGS (7)
  1. LOVENOX [Suspect]
     Route: 051
     Dates: start: 20070802
  2. PAXIL [Concomitant]
     Indication: DEPRESSION
     Dosage: DOSE QUANTITY: 40
     Dates: start: 20070101
  3. CYMBALTA [Concomitant]
     Indication: DEPRESSION
     Dosage: DOSE QUANTITY: 60
     Dates: start: 20070101
  4. OXYCONTIN [Concomitant]
     Indication: PAIN
     Dosage: DOSE QUANTITY: 80
     Dates: start: 20060101
  5. OXYCODONE HCL [Concomitant]
     Indication: PAIN
     Dates: start: 20060101
  6. KLONOPIN [Concomitant]
     Indication: DEPRESSION
     Dosage: DOSE QUANTITY: .5
     Dates: start: 20070101
  7. KLONOPIN [Concomitant]
     Dosage: DOSE QUANTITY: .5
     Dates: start: 20070101

REACTIONS (6)
  - CHILLS [None]
  - HYPERHIDROSIS [None]
  - OEDEMA PERIPHERAL [None]
  - PAIN [None]
  - PYREXIA [None]
  - WOUND INFECTION STAPHYLOCOCCAL [None]
